FAERS Safety Report 5130298-6 (Version None)
Quarter: 2006Q4

REPORT INFORMATION
  Report Type: 
  Country: None (occurrence: None)
  Receive Date: 20061019
  Receipt Date: 20061010
  Transmission Date: 20070319
  Serious: Yes (Hospitalization)
  Sender: FDA-Public Use
  Company Number: 2006UW19725

PATIENT
  Age: 76 Year
  Sex: Female
  Weight: 50 kg

DRUGS (6)
  1. ATENOL [Suspect]
     Indication: ARRHYTHMIA
     Route: 048
     Dates: start: 20050101, end: 20060101
  2. ATENOL [Suspect]
     Indication: HYPERTENSION
     Route: 048
     Dates: start: 20050101, end: 20060101
  3. ATENOL [Suspect]
     Route: 048
     Dates: start: 20061001
  4. ATENOL [Suspect]
     Route: 048
     Dates: start: 20061001
  5. ARADOIS [Concomitant]
     Indication: HYPERTENSION
     Route: 048
     Dates: start: 20050101
  6. EUTHYROX [Concomitant]
     Indication: HYPOTHYROIDISM
     Route: 048

REACTIONS (4)
  - BALANCE DISORDER [None]
  - BLOOD PRESSURE INCREASED [None]
  - DIZZINESS [None]
  - MALAISE [None]
